FAERS Safety Report 19363444 (Version 1)
Quarter: 2021Q2

REPORT INFORMATION
  Report Type: Spontaneous
  Country: TR (occurrence: TR)
  Receive Date: 20210602
  Receipt Date: 20210602
  Transmission Date: 20210717
  Serious: Yes (Hospitalization)
  Sender: FDA-Public Use
  Company Number: TR-INCYTE CORPORATION-2021IN004717

PATIENT

DRUGS (1)
  1. JAKAVI [Suspect]
     Active Substance: RUXOLITINIB
     Indication: PRIMARY MYELOFIBROSIS
     Dosage: UNK (FROM 20?25 DAYS)
     Route: 065

REACTIONS (6)
  - Epistaxis [Unknown]
  - Mouth haemorrhage [Unknown]
  - Thrombosis [Unknown]
  - Tremor [Unknown]
  - Vomiting [Unknown]
  - Anaemia [Unknown]
